FAERS Safety Report 14358624 (Version 1)
Quarter: 2018Q1

REPORT INFORMATION
  Report Type: Spontaneous
  Country: US (occurrence: US)
  Receive Date: 20180105
  Receipt Date: 20180105
  Transmission Date: 20180509
  Serious: No
  Sender: FDA-Public Use
  Company Number: US-SA-2017SA239594

PATIENT
  Age: 47 Year
  Sex: Female

DRUGS (1)
  1. DUPIXENT [Suspect]
     Active Substance: DUPILUMAB
     Route: 065
     Dates: start: 20171011

REACTIONS (3)
  - Alopecia [Unknown]
  - Skin mass [Unknown]
  - Eye infection [Unknown]

NARRATIVE: CASE EVENT DATE: 2017
